FAERS Safety Report 6336141-1 (Version None)
Quarter: 2009Q3

REPORT INFORMATION
  Report Type: 
  Country: None (occurrence: None)
  Receive Date: 20090901
  Receipt Date: 20090826
  Transmission Date: 20100115
  Serious: Yes (Death)
  Sender: FDA-Public Use
  Company Number: JP-BAYER-200912936BYL

PATIENT
  Age: 77 Year
  Sex: Male
  Weight: 60 kg

DRUGS (10)
  1. NEXAVAR [Suspect]
     Indication: HEPATIC NEOPLASM MALIGNANT
     Dosage: TOTAL DAILY DOSE: 800 MG  UNIT DOSE: 200 MG
     Route: 048
     Dates: start: 20090803, end: 20090810
  2. DUROTEP [Concomitant]
     Route: 063
  3. OXINORM [Concomitant]
     Route: 048
  4. PARIET [Concomitant]
     Route: 048
  5. LASIX [Concomitant]
     Route: 048
  6. LIVACT [Concomitant]
     Route: 048
  7. ARTIST [Concomitant]
     Route: 048
  8. NOVAMIN [Concomitant]
     Route: 048
  9. LUVOX [Concomitant]
     Route: 048
  10. RINDERON [Concomitant]
     Route: 048
     Dates: start: 20090807

REACTIONS (8)
  - BLOOD PRESSURE DECREASED [None]
  - BODY TEMPERATURE INCREASED [None]
  - DISORIENTATION [None]
  - HEPATIC NEOPLASM MALIGNANT [None]
  - HYPOPHAGIA [None]
  - MALIGNANT NEOPLASM PROGRESSION [None]
  - PO2 DECREASED [None]
  - RESPIRATORY RATE INCREASED [None]
